FAERS Safety Report 6315511-1 (Version None)
Quarter: 2009Q3

REPORT INFORMATION
  Report Type: 
  Country: None (occurrence: None)
  Receive Date: 20090819
  Receipt Date: 20090814
  Transmission Date: 20100115
  Serious: Yes (Death, Other)
  Sender: FDA-Public Use
  Company Number: US-AMGEN-US341930

PATIENT
  Sex: Female
  Weight: 57.2 kg

DRUGS (12)
  1. NPLATE [Suspect]
     Indication: NON-HODGKIN'S LYMPHOMA
     Route: 058
     Dates: start: 20081219, end: 20090407
  2. PLATELETS [Concomitant]
     Route: 042
     Dates: start: 20080129
  3. ACTONEL [Concomitant]
     Route: 048
  4. PERCOCET [Concomitant]
     Route: 048
     Dates: start: 20081201
  5. SACCHAROMYCES BOULARDII [Concomitant]
     Route: 048
  6. METAMUCIL [Concomitant]
  7. LORAZEPAM [Concomitant]
     Route: 048
  8. VANCOMYCIN [Concomitant]
     Route: 048
     Dates: start: 20081201
  9. MIRALAX [Concomitant]
  10. ARANESP [Concomitant]
     Dates: start: 20081219, end: 20090304
  11. MEGACE [Concomitant]
     Route: 048
  12. CYTARABINE [Concomitant]
     Route: 042
     Dates: start: 20081218, end: 20090119

REACTIONS (5)
  - ASTHENIA [None]
  - BODY TEMPERATURE INCREASED [None]
  - DIARRHOEA [None]
  - LYMPHOMA [None]
  - THERAPEUTIC RESPONSE DECREASED [None]
